FAERS Safety Report 11067859 (Version 1)
Quarter: 2015Q2

REPORT INFORMATION
  Report Type: Spontaneous
  Country: JP (occurrence: JP)
  Receive Date: 20150427
  Receipt Date: 20150427
  Transmission Date: 20150821
  Serious: Yes (Death, Hospitalization)
  Sender: FDA-Public Use
  Company Number: JP-SA-2015SA053391

PATIENT
  Age: 79 Year
  Sex: Male

DRUGS (3)
  1. APIDRA [Suspect]
     Active Substance: INSULIN GLULISINE
     Indication: FULMINANT TYPE 1 DIABETES MELLITUS
     Dosage: DOSE:10 UNIT(S)
     Route: 058
     Dates: start: 201210
  2. LANTUS [Suspect]
     Active Substance: INSULIN GLARGINE
     Indication: FULMINANT TYPE 1 DIABETES MELLITUS
     Dosage: DOSE:6 UNIT(S)
     Route: 058
     Dates: start: 2014
  3. TRESIBA [Suspect]
     Active Substance: INSULIN DEGLUDEC
     Indication: FULMINANT TYPE 1 DIABETES MELLITUS
     Route: 065
     Dates: start: 201306, end: 2014

REACTIONS (3)
  - Hypoglycaemic encephalopathy [Fatal]
  - Altered state of consciousness [Fatal]
  - Hypoglycaemia [Fatal]

NARRATIVE: CASE EVENT DATE: 201408
